FAERS Safety Report 15699374 (Version 3)
Quarter: 2019Q1

REPORT INFORMATION
  Report Type: Spontaneous
  Country: US (occurrence: US)
  Receive Date: 20181207
  Receipt Date: 20190123
  Transmission Date: 20190417
  Serious: Yes (Hospitalization, Other)
  Sender: FDA-Public Use
  Company Number: US-ASTRAZENECA-2018SF47499

PATIENT
  Age: 65 Year
  Sex: Female
  Weight: 64.4 kg

DRUGS (6)
  1. MECLIZINE [Concomitant]
     Active Substance: MECLIZINE HYDROCHLORIDE
     Indication: VERTIGO
  2. VITAMINS [Concomitant]
     Active Substance: VITAMINS
     Indication: ELECTROLYTE IMBALANCE
  3. MIRALAX [Concomitant]
     Active Substance: POLYETHYLENE GLYCOL 3350
     Indication: CONSTIPATION
  4. OMEPRAZOLE. [Suspect]
     Active Substance: OMEPRAZOLE
     Indication: GASTROOESOPHAGEAL REFLUX DISEASE
     Route: 048
  5. SYMBICORT [Suspect]
     Active Substance: BUDESONIDE\FORMOTEROL FUMARATE DIHYDRATE
     Indication: CHRONIC OBSTRUCTIVE PULMONARY DISEASE
     Dosage: 80/4.5 MCG TWO INHALATIONS 12 HOURS APART
     Route: 055
     Dates: start: 20181107
  6. OMEPRAZOLE. [Suspect]
     Active Substance: OMEPRAZOLE
     Indication: IRRITABLE BOWEL SYNDROME
     Route: 048

REACTIONS (16)
  - Constipation [Unknown]
  - Confusional state [Unknown]
  - Blood electrolytes decreased [Unknown]
  - Intestinal obstruction [Unknown]
  - Flatulence [Unknown]
  - Oropharyngeal pain [Unknown]
  - Cough [Unknown]
  - Device issue [Unknown]
  - Obstruction gastric [Unknown]
  - Chest discomfort [Unknown]
  - Dyspnoea [Unknown]
  - Vertigo [Unknown]
  - Malaise [Unknown]
  - Ear disorder [Unknown]
  - Off label use [Unknown]
  - Therapy cessation [Unknown]

NARRATIVE: CASE EVENT DATE: 2017
